FAERS Safety Report 10775679 (Version 1)
Quarter: 2015Q1

REPORT INFORMATION
  Report Type: Spontaneous
  Country: IN (occurrence: None)
  Receive Date: 20150205
  Receipt Date: 20150205
  Transmission Date: 20150721
  Serious: Yes (Other)
  Sender: FDA-Public Use
  Company Number: FK201500525

PATIENT
  Age: 22 Year
  Sex: Male

DRUGS (5)
  1. CETIRIZINE [Concomitant]
     Active Substance: CETIRIZINE HYDROCHLORIDE
  2. DEXAMETHASONE INJECTION (MANUFACTURER UNKNOWN) (DEXAMETHASONE SODIUM PHOSPHATE) (DEXAMETHASONE SODIUM PHOSPHATE) [Suspect]
     Active Substance: DEXAMETHASONE
     Indication: FUNGAL INFECTION
     Route: 042
  3. COTRIMOXAZOLE (BACTRIM) [Concomitant]
  4. GENTAMICIN (MANUFACTURER UNKNOWN) (GENTAMICIN) (GENTAMICIN) [Suspect]
     Active Substance: GENTAMICIN
     Indication: FUNGAL INFECTION
     Route: 042
  5. PHENIRAMINE [Suspect]
     Active Substance: PHENIRAMINE
     Indication: FUNGAL INFECTION
     Route: 042

REACTIONS (9)
  - Substance abuse [None]
  - Mental disorder [None]
  - Respiratory tract infection [None]
  - Osteonecrosis [None]
  - Dependence [None]
  - Hypochondriasis [None]
  - Abnormal behaviour [None]
  - Body tinea [None]
  - Gastrointestinal infection [None]
